FAERS Safety Report 6670617-2 (Version None)
Quarter: 2010Q2

REPORT INFORMATION
  Report Type: 
  Country: None (occurrence: None)
  Receive Date: 20100407
  Receipt Date: 20100329
  Transmission Date: 20101027
  Serious: Yes (Hospitalization)
  Sender: FDA-Public Use
  Company Number: US-JNJFOC-20100308898

PATIENT
  Sex: Male
  Weight: 77.11 kg

DRUGS (5)
  1. FENTANYL-100 [Suspect]
     Indication: TRIGEMINAL NEURALGIA
     Route: 062
  2. FENTANYL-100 [Suspect]
     Route: 062
  3. FENTANYL CITRATE [Suspect]
     Indication: TRIGEMINAL NEURALGIA
     Route: 062
  4. FENTANYL CITRATE [Suspect]
     Route: 062
  5. PRILOSEC [Concomitant]
     Indication: GASTRIC DISORDER
     Route: 048

REACTIONS (4)
  - DRUG EFFECT DECREASED [None]
  - DRY SKIN [None]
  - GASTROINTESTINAL PAIN [None]
  - WRONG TECHNIQUE IN DRUG USAGE PROCESS [None]
